FAERS Safety Report 6725468-7 (Version None)
Quarter: 2010Q2

REPORT INFORMATION
  Report Type: 
  Country: None (occurrence: None)
  Receive Date: 20100514
  Receipt Date: 20100505
  Transmission Date: 20101027
  Serious: Yes (Other)
  Sender: FDA-Public Use
  Company Number: -SANOFI-AVENTIS-2010SA026356

PATIENT
  Age: 32 Year
  Sex: Female

DRUGS (17)
  1. RIFAMPICIN [Suspect]
     Route: 048
     Dates: start: 20100204
  2. RIFAMPICIN [Suspect]
     Route: 048
     Dates: start: 20100204
  3. CLINDAMYCIN [Suspect]
     Route: 048
     Dates: start: 20100204
  4. CLOZARIL [Suspect]
     Indication: SCHIZOPHRENIA
     Route: 065
     Dates: start: 20090305
  5. CLOZARIL [Suspect]
     Route: 048
     Dates: start: 20100406
  6. CLINDAMYCIN [Concomitant]
     Indication: DEPRESSION
     Route: 048
     Dates: start: 20081201
  7. CLOZARIL [Concomitant]
     Route: 065
     Dates: start: 20100204
  8. CLOZARIL [Concomitant]
     Route: 065
     Dates: start: 20100204
  9. CLOZARIL [Concomitant]
     Route: 048
     Dates: start: 20090801
  10. CLOZARIL [Concomitant]
     Route: 048
     Dates: start: 20090801
  11. DICYCLOVERINE [Concomitant]
     Indication: DYSPEPSIA
     Route: 048
  12. HIBISCRUB [Concomitant]
     Indication: ABDOMINAL PAIN
     Route: 065
  13. MIRTAZAPINE [Concomitant]
     Indication: HYPERTENSION
     Route: 048
  14. PEPPERMINT OIL [Concomitant]
     Indication: OBESITY
     Route: 048
  15. RIFAMPICIN [Concomitant]
     Indication: IRRITABLE BOWEL SYNDROME
     Route: 048
  16. TRIHEXYPHENIDYL HCL [Concomitant]
     Route: 048
  17. VITAMIN B1 TAB [Concomitant]
     Indication: ASTHMA
     Route: 065

REACTIONS (4)
  - DERMATITIS [None]
  - DRUG INTERACTION [None]
  - SUBCUTANEOUS ABSCESS [None]
  - WHITE BLOOD CELL COUNT DECREASED [None]
